FAERS Safety Report 9363810 (Version 1)
Quarter: 2013Q2

REPORT INFORMATION
  Report Type: Spontaneous
  Country: DE (occurrence: DE)
  Receive Date: 20130624
  Receipt Date: 20130624
  Transmission Date: 20140414
  Serious: Yes (Congenital Anomaly)
  Sender: FDA-Public Use
  Company Number: DE-JNJFOC-20130609339

PATIENT
  Sex: Male
  Weight: 2.59 kg

DRUGS (3)
  1. REMICADE [Suspect]
     Indication: CROHN^S DISEASE
     Route: 064
     Dates: start: 20120524, end: 20120524
  2. METHOTREXATE [Suspect]
     Indication: CROHN^S DISEASE
     Dosage: BEGAN 1 YEAR PRE CONCEPTION
     Route: 064
     Dates: start: 20120426, end: 20120529
  3. FOLSAURE [Concomitant]
     Indication: PROPHYLAXIS OF NEURAL TUBE DEFECT
     Route: 064
     Dates: start: 20120515, end: 20130115

REACTIONS (3)
  - Small for dates baby [Unknown]
  - Pelvi-ureteric obstruction [Recovered/Resolved with Sequelae]
  - Foetal exposure during pregnancy [Recovered/Resolved]
